FAERS Safety Report 20416312 (Version 1)
Quarter: 2022Q1

REPORT INFORMATION
  Report Type: Spontaneous
  Country: US (occurrence: None)
  Receive Date: 20220202
  Receipt Date: 20220202
  Transmission Date: 20220424
  Serious: Yes (Hospitalization)
  Sender: FDA-Public Use
  Company Number: None

PATIENT
  Age: 72 Year
  Sex: Male
  Weight: 94.6 kg

DRUGS (3)
  1. DARATUMUMAB [Suspect]
     Active Substance: DARATUMUMAB
     Dates: end: 20220119
  2. DEXAMETHASONE [Suspect]
     Active Substance: DEXAMETHASONE
     Dates: end: 20220119
  3. LENALIDOMIDE [Suspect]
     Active Substance: LENALIDOMIDE
     Dates: end: 20220124

REACTIONS (15)
  - Nausea [None]
  - Vomiting [None]
  - Decreased appetite [None]
  - Diarrhoea [None]
  - COVID-19 pneumonia [None]
  - Hyponatraemia [None]
  - Blood lactic acid increased [None]
  - Ageusia [None]
  - Anosmia [None]
  - Tachycardia [None]
  - Hypotension [None]
  - Hypokalaemia [None]
  - Atrial fibrillation [None]
  - Myalgia [None]
  - Tenderness [None]

NARRATIVE: CASE EVENT DATE: 20220122
